FAERS Safety Report 8606408-2 (Version None)
Quarter: 2012Q3

REPORT INFORMATION
  Report Type: 
  Country: None (occurrence: None)
  Receive Date: 20120820
  Receipt Date: 20120809
  Transmission Date: 20120928
  Serious: Yes (Other)
  Sender: FDA-Public Use
  Company Number: ES-ELI_LILLY_AND_COMPANY-ES201207001217

PATIENT
  Sex: Female
  Weight: 46 kg

DRUGS (8)
  1. ATORVASTATIN CALCIUM [Concomitant]
     Indication: HYPERLIPIDAEMIA
     Dosage: UNK, QD
     Route: 048
  2. VOLTAREN [Concomitant]
     Indication: PAIN
     Dosage: UNK, PRN
     Route: 048
  3. OMEPRAZOLE [Concomitant]
     Indication: GASTROINTESTINAL DISORDER
     Dosage: UNK, QD
     Route: 048
  4. FORTEO [Suspect]
     Dosage: 20 UG, QD
     Route: 058
     Dates: start: 20111201, end: 20120601
  5. FORTEO [Suspect]
     Indication: OSTEOPOROSIS
     Dosage: 20 UG, QD
     Route: 058
     Dates: start: 20090101, end: 20100101
  6. CANDESARTAN CILEXETIL AND HYDROCHLOROTHIAZIDE [Concomitant]
     Indication: HYPERTENSION
     Dosage: UNK, QD
     Route: 048
  7. ASPIRIN [Concomitant]
     Indication: PROPHYLAXIS
     Dosage: UNK, QD
     Route: 048
  8. ENANTYUM [Concomitant]
     Indication: PAIN
     Route: 048

REACTIONS (5)
  - HIP FRACTURE [None]
  - RENAL CYST [None]
  - HAEMANGIOMA OF LIVER [None]
  - POST PROCEDURAL COMPLICATION [None]
  - ANAEMIA [None]
